FAERS Safety Report 17881390 (Version 2)
Quarter: 2020Q2

REPORT INFORMATION
  Report Type: Report from Study
  Country: US (occurrence: US)
  Receive Date: 20200610
  Receipt Date: 20200630
  Transmission Date: 20200714
  Serious: Yes (Hospitalization)
  Sender: FDA-Public Use
  Company Number: US-ACTELION-A-NJ2020-205980

PATIENT
  Sex: Female
  Weight: 64.4 kg

DRUGS (3)
  1. UPTRAVI [Suspect]
     Active Substance: SELEXIPAG
     Indication: PULMONARY ARTERIAL HYPERTENSION
     Dosage: 1200 MCG, BID
     Route: 048
  2. UPTRAVI [Suspect]
     Active Substance: SELEXIPAG
     Dosage: 600 MCG, BID
     Route: 048
  3. TADALAFIL. [Concomitant]
     Active Substance: TADALAFIL

REACTIONS (11)
  - Weight decreased [Unknown]
  - Pain [Unknown]
  - Nausea [Unknown]
  - Hypophagia [Unknown]
  - Adverse event [Not Recovered/Not Resolved]
  - Blood potassium abnormal [Unknown]
  - Ligament pain [Unknown]
  - Myalgia [Unknown]
  - Electrolyte imbalance [Unknown]
  - Blood sodium abnormal [Unknown]
  - Dehydration [Unknown]
